FAERS Safety Report 18923787 (Version 1)
Quarter: 2021Q1

REPORT INFORMATION
  Report Type: Spontaneous
  Country: CA (occurrence: CA)
  Receive Date: 20210222
  Receipt Date: 20210222
  Transmission Date: 20210420
  Serious: Yes (Other)
  Sender: FDA-Public Use
  Company Number: CA-PFIZER INC-2021159498

PATIENT
  Age: 66 Year
  Sex: Female
  Weight: 63.5 kg

DRUGS (1)
  1. CELEBREX [Suspect]
     Active Substance: CELECOXIB
     Dosage: 100 MG, 2X/DAY
     Route: 065
     Dates: start: 20200824, end: 202009

REACTIONS (3)
  - Drug ineffective [Unknown]
  - Haemorrhage [Unknown]
  - Contraindicated product administered [Unknown]

NARRATIVE: CASE EVENT DATE: 20200824
